FAERS Safety Report 14381165 (Version 3)
Quarter: 2018Q2

REPORT INFORMATION
  Report Type: Spontaneous
  Country: CA (occurrence: CA)
  Receive Date: 20180112
  Receipt Date: 20180507
  Transmission Date: 20180711
  Serious: Yes (Hospitalization, Other)
  Sender: FDA-Public Use
  Company Number: CA-CELLTRION INC.-2017CA011451

PATIENT

DRUGS (9)
  1. INFLECTRA [Suspect]
     Active Substance: INFLIXIMAB-DYYB
     Dosage: 300 MG (10 MG/KG) CYCLIC (EVERY 4 WEEKS)
     Route: 042
     Dates: start: 20170822, end: 20170822
  2. INFLECTRA [Suspect]
     Active Substance: INFLIXIMAB-DYYB
     Dosage: 700 MG (10 MG/KG) CYCLIC (EVERY 4 WEEKS)
     Route: 042
     Dates: start: 20171013, end: 20171013
  3. DALTEPARIN [Concomitant]
     Active Substance: DALTEPARIN
     Indication: THROMBOSIS
     Dosage: 12300 UNK, UNK
     Route: 058
     Dates: start: 20170901
  4. INFLECTRA [Suspect]
     Active Substance: INFLIXIMAB-DYYB
     Indication: COLITIS ULCERATIVE
     Dosage: 400 MG (10MG/KG) , CYCLIC, (EVERY 0,2, 6 WEEKS, THEN EVERY 8 WEEKS)
     Route: 042
     Dates: start: 20170725, end: 20170808
  5. INFLECTRA [Suspect]
     Active Substance: INFLIXIMAB-DYYB
     Dosage: 800 MG,(10 MG/KG)  CYCLIC (EVERY 4 WEEKS)
     Route: 042
     Dates: start: 20171215
  6. PREDNISONE. [Concomitant]
     Active Substance: PREDNISONE
     Indication: COLITIS ULCERATIVE
     Dosage: 25 MG, UNK
     Route: 048
     Dates: start: 20170901
  7. HYDROCORTISONE. [Concomitant]
     Active Substance: HYDROCORTISONE
     Route: 042
  8. NEXIUM [Concomitant]
     Active Substance: ESOMEPRAZOLE MAGNESIUM
     Indication: GASTRIC ULCER
     Dosage: 40 MG, 1X/DAY
     Route: 048
     Dates: start: 2006
  9. ASACOL [Concomitant]
     Active Substance: MESALAMINE
     Dosage: 3200 MG, (8 TABLETS), 1X/DAY
     Route: 048
     Dates: start: 201706

REACTIONS (22)
  - Red cell distribution width abnormal [Recovering/Resolving]
  - Vomiting [Unknown]
  - Haemoglobin abnormal [Recovering/Resolving]
  - Haematocrit abnormal [Recovering/Resolving]
  - Monocyte count abnormal [Recovering/Resolving]
  - Weight decreased [Not Recovered/Not Resolved]
  - Hypokinesia [Unknown]
  - Dehydration [Recovered/Resolved]
  - Platelet count abnormal [Recovering/Resolving]
  - Nausea [Recovered/Resolved]
  - Lymphocyte count decreased [Recovering/Resolving]
  - Decreased appetite [Unknown]
  - Blood albumin abnormal [Recovering/Resolving]
  - Monocyte percentage abnormal [Recovering/Resolving]
  - Lymphocyte percentage abnormal [Recovering/Resolving]
  - Blood sodium abnormal [Recovering/Resolving]
  - Product use issue [Unknown]
  - Heart rate decreased [Unknown]
  - Red blood cell count abnormal [Recovering/Resolving]
  - Condition aggravated [Not Recovered/Not Resolved]
  - Mean cell haemoglobin concentration abnormal [Recovering/Resolving]
  - Back pain [Unknown]

NARRATIVE: CASE EVENT DATE: 20170807
